FAERS Safety Report 6598735-8 (Version None)
Quarter: 2010Q1

REPORT INFORMATION
  Report Type: 
  Country: None (occurrence: None)
  Receive Date: 20100224
  Receipt Date: 20100214
  Transmission Date: 20100710
  Serious: Yes (Hospitalization)
  Sender: FDA-Public Use
  Company Number: IN-SOLVAY-00310001145

PATIENT
  Age: 21501 Day
  Sex: Male

DRUGS (1)
  1. CREON [Suspect]
     Indication: PANCREATIC INSUFFICIENCY
     Dosage: DAILY DOSE: 2,40,000; AS USED: 40,000; FREQUENCY: FOUR TIMES A DAY
     Route: 048
     Dates: start: 20090425, end: 20100201

REACTIONS (1)
  - HEMIPLEGIA [None]
